FAERS Safety Report 9380959 (Version 1)
Quarter: 2013Q3

REPORT INFORMATION
  Report Type: Report from Study
  Country: US (occurrence: US)
  Receive Date: 20130703
  Receipt Date: 20130703
  Transmission Date: 20140515
  Serious: Yes (Other)
  Sender: FDA-Public Use
  Company Number: US-ROCHE-1244193

PATIENT
  Age: 58 Year
  Sex: Female

DRUGS (6)
  1. RITUXAN [Suspect]
     Indication: LEUKAEMIA
     Route: 065
  2. BENDAMUSTINE HYDROCHLORIDE [Concomitant]
     Route: 042
  3. SOLU-MEDROL [Concomitant]
     Route: 042
  4. PEPCID [Concomitant]
     Route: 042
  5. BENADRYL (UNITED STATES) [Concomitant]
     Route: 042
  6. PROCHLORPERAZINE [Concomitant]
     Route: 048

REACTIONS (5)
  - Back pain [Unknown]
  - Throat tightness [Unknown]
  - Dyspnoea [Unknown]
  - Flushing [Unknown]
  - Nausea [Unknown]
